FAERS Safety Report 7097140-8 (Version None)
Quarter: 2010Q4

REPORT INFORMATION
  Report Type: 
  Country: None (occurrence: None)
  Receive Date: 20101111
  Receipt Date: 20101101
  Transmission Date: 20110411
  Serious: Yes (Death)
  Sender: FDA-Public Use
  Company Number: US-CUBIST-2010S1001653

PATIENT
  Sex: Male

DRUGS (2)
  1. CUBICIN [Suspect]
     Indication: ENTEROCOCCAL BACTERAEMIA
  2. CUBICIN [Suspect]
     Indication: ENDOCARDITIS

REACTIONS (1)
  - ENDOCARDITIS [None]
